FAERS Safety Report 5029526-7 (Version None)
Quarter: 2006Q2

REPORT INFORMATION
  Report Type: 
  Country: None (occurrence: None)
  Receive Date: 20060620
  Receipt Date: 20060119
  Transmission Date: 20061013
  Serious: No
  Sender: FDA-Public Use
  Company Number: US-GLAXOSMITHKLINE-A0590067A

PATIENT
  Age: 53 Year
  Sex: Female

DRUGS (5)
  1. ZYBAN [Suspect]
     Dosage: 150MG TWICE PER DAY
     Route: 048
     Dates: start: 20060101
  2. FENTANYL TRANSDERMAL SYSTEM [Concomitant]
  3. DURAGESIC-100 [Concomitant]
  4. ROXICODONE [Concomitant]
  5. MOTRIN [Concomitant]

REACTIONS (2)
  - NAUSEA [None]
  - VOMITING [None]
